FAERS Safety Report 10224780 (Version 1)
Quarter: 2014Q2

REPORT INFORMATION
  Report Type: Spontaneous
  Country: IT (occurrence: IT)
  Receive Date: 20140609
  Receipt Date: 20140609
  Transmission Date: 20141212
  Serious: Yes (Disabling)
  Sender: FDA-Public Use
  Company Number: IT-TEVA-485062ISR

PATIENT
  Age: 62 Year
  Sex: 0

DRUGS (3)
  1. FLUORURACILE TEVA [Suspect]
     Indication: COLON CANCER METASTATIC
     Dosage: 3465 MILLIGRAM DAILY;
     Route: 042
     Dates: start: 20131121
  2. OXALIPLATINO TVEA [Suspect]
     Indication: COLON CANCER METASTATIC
     Dosage: 124 MILLIGRAM DAILY;
     Route: 042
     Dates: start: 20131121
  3. AVASTIN [Suspect]
     Indication: COLON CANCER METASTATIC
     Dosage: 320 MILLIGRAM DAILY;
     Route: 042
     Dates: start: 20131121, end: 20140331

REACTIONS (1)
  - Hypertransaminasaemia [Recovered/Resolved with Sequelae]
